FAERS Safety Report 6824575-8 (Version None)
Quarter: 2010Q3

REPORT INFORMATION
  Report Type: 
  Country: None (occurrence: None)
  Receive Date: 20100708
  Receipt Date: 20070127
  Transmission Date: 20110219
  Serious: No
  Sender: FDA-Public Use
  Company Number: US-PFIZER INC-2006132258

PATIENT
  Sex: Female
  Weight: 49.9 kg

DRUGS (4)
  1. CHANTIX [Suspect]
     Indication: SMOKING CESSATION THERAPY
     Dates: start: 20061001
  2. AMITRIPTYLINE [Concomitant]
     Indication: SLEEP DISORDER
  3. ALPRAZOLAM [Concomitant]
     Indication: BACK INJURY
  4. ALPRAZOLAM [Concomitant]
     Indication: NECK INJURY

REACTIONS (15)
  - ABNORMAL DREAMS [None]
  - ANXIETY [None]
  - BACK DISORDER [None]
  - BACK PAIN [None]
  - EMOTIONAL DISORDER [None]
  - ENERGY INCREASED [None]
  - FATIGUE [None]
  - FEELING ABNORMAL [None]
  - FEELING JITTERY [None]
  - INSOMNIA [None]
  - MALAISE [None]
  - NAUSEA [None]
  - POOR QUALITY SLEEP [None]
  - SLEEP DISORDER [None]
  - STRESS [None]
